FAERS Safety Report 22142460 (Version 3)
Quarter: 2024Q2

REPORT INFORMATION
  Report Type: Spontaneous
  Country: AU (occurrence: AU)
  Receive Date: 20230327
  Receipt Date: 20240628
  Transmission Date: 20240716
  Serious: Yes (Death, Other)
  Sender: FDA-Public Use
  Company Number: AU-ROCHE-3315780

PATIENT
  Sex: Male

DRUGS (10)
  1. ACTEMRA [Suspect]
     Active Substance: TOCILIZUMAB
     Indication: Product used for unknown indication
     Dosage: 162MG/0.9ML
     Route: 058
  2. AMLODIPINE [Concomitant]
     Active Substance: AMLODIPINE BESYLATE
  3. APIXABAN [Concomitant]
     Active Substance: APIXABAN
  4. FILGRASTIM [Concomitant]
     Active Substance: FILGRASTIM
     Dosage: 300MCG/0.5ML (PREFILLED SYRINGE) SOLUTION FOR INJECTION EVERY 2 WEEKS
  5. FUROSEMIDE [Concomitant]
     Active Substance: FUROSEMIDE
     Dosage: 40MG TABLETS 1 MANE ON AN EMPTY STOMACH
  6. GLICLAZIDE [Concomitant]
     Active Substance: GLICLAZIDE
     Dosage: 60MG MODIFIED RELEASE TABLETS WITH FOOD
  7. LANSOPRAZOLE [Concomitant]
     Active Substance: LANSOPRAZOLE
     Dosage: 15MG ORALLY DISINTEGRATING TABLETS
  8. METOPROLOL [Concomitant]
     Active Substance: METOPROLOL
     Dosage: TARTRATE 50MG TABLETS
  9. ROSUVASTATIN [Concomitant]
     Active Substance: ROSUVASTATIN
     Dosage: 5MG TABLETS
  10. XIGDUO XR [Concomitant]
     Active Substance: DAPAGLIFLOZIN PROPANEDIOL\METFORMIN HYDROCHLORIDE
     Dosage: 10/1000 (EXTENDED RELEASE TABLETS)

REACTIONS (10)
  - Off label use [Unknown]
  - Polychondritis [Unknown]
  - Lung infiltration [Unknown]
  - Cutaneous vasculitis [Unknown]
  - Type 2 diabetes mellitus [Unknown]
  - Atrial fibrillation [Unknown]
  - Gastrooesophageal reflux disease [Unknown]
  - Neutropenia [Unknown]
  - Hyperlipidaemia [Unknown]
  - Sepsis [Fatal]
